FAERS Safety Report 10034489 (Version 2)
Quarter: 2014Q1

REPORT INFORMATION
  Report Type: Spontaneous
  Country: US (occurrence: None)
  Receive Date: 20140321
  Receipt Date: 20140327
  Transmission Date: 20141002
  Serious: Yes (Death, Hospitalization)
  Sender: FDA-Public Use
  Company Number: UTC-045794

PATIENT
  Age: 68 Year
  Sex: Male

DRUGS (3)
  1. TYVASO [Suspect]
     Indication: PULMONARY ARTERIAL HYPERTENSION
     Dosage: 18-54 MCG (4 IN 1 D), INHALATION
     Route: 055
     Dates: start: 20140128
  2. LETAIRIS (AMBRISENTAN) (TABLETS) [Concomitant]
  3. ADCIRCA (TADALAFIL) [Concomitant]

REACTIONS (3)
  - Renal failure [None]
  - Pulmonary oedema [None]
  - Hypotension [None]
